FAERS Safety Report 5103633-2 (Version None)
Quarter: 2006Q3

REPORT INFORMATION
  Report Type: 
  Country: None (occurrence: None)
  Receive Date: 20060911
  Receipt Date: 20060911
  Transmission Date: 20061208
  Serious: Yes (Hospitalization)
  Sender: FDA-Public Use
  Company Number: None

PATIENT
  Age: 72 Year
  Sex: Male
  Weight: 65.7716 kg

DRUGS (2)
  1. DILANTIN [Suspect]
     Indication: CEREBROVASCULAR ACCIDENT
     Dosage: 300 MG QDAY PO
     Route: 048
  2. DILANTIN [Suspect]
     Indication: CONVULSION
     Dosage: 300 MG QDAY PO
     Route: 048

REACTIONS (3)
  - CHEST PAIN [None]
  - RASH [None]
  - SKIN EXFOLIATION [None]
